FAERS Safety Report 13233930 (Version 10)
Quarter: 2018Q2

REPORT INFORMATION
  Report Type: Report from Study
  Country: GB (occurrence: GB)
  Receive Date: 20170215
  Receipt Date: 20180524
  Transmission Date: 20180711
  Serious: Yes (Hospitalization, Other)
  Sender: FDA-Public Use
  Company Number: GB-BRISTOL-MYERS SQUIBB COMPANY-BMS-2016-105149

PATIENT
  Sex: Female

DRUGS (1)
  1. ABATACEPT [Suspect]
     Active Substance: ABATACEPT
     Indication: RHEUMATOID ARTHRITIS
     Dosage: 125 MG, QWK
     Route: 058
     Dates: start: 20150929

REACTIONS (9)
  - Localised infection [Unknown]
  - Nasopharyngitis [Unknown]
  - Foot operation [Unknown]
  - Pain [Unknown]
  - Drug dose omission [Unknown]
  - Feeling abnormal [Unknown]
  - Malaise [Unknown]
  - Infection [Unknown]
  - Limb discomfort [Unknown]
